FAERS Safety Report 26062532 (Version 2)
Quarter: 2025Q4

REPORT INFORMATION
  Report Type: Spontaneous
  Country: US (occurrence: US)
  Receive Date: 20251119
  Receipt Date: 20251127
  Transmission Date: 20260118
  Serious: No
  Sender: ALMUS
  Company Number: US-ALMIRALL-US-2025-4204

PATIENT
  Age: 57 Year
  Sex: Female

DRUGS (1)
  1. KLISYRI [Suspect]
     Active Substance: TIRBANIBULIN
     Indication: Actinic keratosis
     Route: 048
     Dates: start: 20251029, end: 20251103

REACTIONS (2)
  - Application site vesicles [Unknown]
  - Dermatitis [Unknown]
